FAERS Safety Report 9377278 (Version 1)
Quarter: 2013Q3

REPORT INFORMATION
  Report Type: Spontaneous
  Country: JO (occurrence: JO)
  Receive Date: 20130701
  Receipt Date: 20130701
  Transmission Date: 20140515
  Serious: Yes (Hospitalization)
  Sender: FDA-Public Use
  Company Number: JO-SANOFI-AVENTIS-2013SA063718

PATIENT
  Age: 24 Year
  Sex: Male

DRUGS (7)
  1. FLUOXETINE [Suspect]
     Indication: DEPRESSION
     Route: 065
  2. PETHIDINE HYDROCHLORIDE [Interacting]
     Indication: PAIN
     Route: 030
  3. FENTANYL [Interacting]
     Indication: INDUCTION OF ANAESTHESIA
     Route: 042
  4. MIDAZOLAM [Concomitant]
     Indication: INDUCTION OF ANAESTHESIA
     Route: 042
  5. PROPOFOL [Concomitant]
     Indication: INDUCTION OF ANAESTHESIA
     Route: 042
  6. SEVOFLURANE [Concomitant]
     Indication: GENERAL ANAESTHESIA
  7. MORPHINE [Concomitant]
     Route: 042

REACTIONS (13)
  - Serotonin syndrome [Recovered/Resolved]
  - Drug interaction [Unknown]
  - Headache [Recovered/Resolved]
  - Dyspnoea [Recovered/Resolved]
  - Somnolence [Recovered/Resolved]
  - Loss of consciousness [Recovered/Resolved]
  - Blood pressure increased [Recovered/Resolved]
  - Tremor [Recovered/Resolved]
  - Heart rate increased [Recovered/Resolved]
  - Body temperature increased [Recovered/Resolved]
  - Muscle spasticity [Recovered/Resolved]
  - Unresponsive to stimuli [Recovered/Resolved]
  - Coma scale abnormal [Recovered/Resolved]
